FAERS Safety Report 6105512-0 (Version None)
Quarter: 2009Q1

REPORT INFORMATION
  Report Type: 
  Country: None (occurrence: None)
  Receive Date: 20090306
  Receipt Date: 20090227
  Transmission Date: 20090719
  Serious: Yes (Hospitalization)
  Sender: FDA-Public Use
  Company Number: A0771664A

PATIENT
  Age: 56 Year
  Sex: Male
  Weight: 88.6 kg

DRUGS (4)
  1. AVANDIA [Suspect]
     Indication: DIABETES MELLITUS
     Route: 048
  2. LIPITOR [Concomitant]
  3. NITROSTAT [Concomitant]
     Dates: start: 19950101
  4. LYRICA [Concomitant]

REACTIONS (1)
  - MYOCARDIAL INFARCTION [None]
